FAERS Safety Report 17420238 (Version 2)
Quarter: 2020Q1

REPORT INFORMATION
  Report Type: Spontaneous
  Country: FR (occurrence: FR)
  Receive Date: 20200214
  Receipt Date: 20200227
  Transmission Date: 20200409
  Serious: Yes (Other)
  Sender: FDA-Public Use
  Company Number: FR-TEVA-2020-FR-1185664

PATIENT
  Age: 37 Year
  Sex: Female

DRUGS (3)
  1. MODIODAL 100 MG [Suspect]
     Active Substance: MODAFINIL
     Dosage: THREE EVEN FOUR TABLETS PER DAY
     Route: 048
     Dates: end: 20200206
  2. BILASKA [Suspect]
     Active Substance: BILASTINE
     Indication: RHINITIS ALLERGIC
     Dates: start: 201907, end: 20190929
  3. MODIODAL 100 MG [Suspect]
     Active Substance: MODAFINIL
     Indication: HYPERSOMNIA
     Dosage: 200 MILLIGRAM DAILY;
     Route: 048
     Dates: start: 2002

REACTIONS (10)
  - Product use in unapproved indication [Unknown]
  - Oesophagitis ulcerative [Unknown]
  - Eye pain [Recovering/Resolving]
  - Headache [Unknown]
  - Rhinitis allergic [Unknown]
  - Abdominal pain upper [Recovering/Resolving]
  - Muscle contracture [Unknown]
  - Gastrooesophageal sphincter insufficiency [Unknown]
  - Neck pain [Recovering/Resolving]
  - Off label use [Unknown]

NARRATIVE: CASE EVENT DATE: 201907
